FAERS Safety Report 13102732 (Version 1)
Quarter: 2017Q1

REPORT INFORMATION
  Report Type: Spontaneous
  Country: DE (occurrence: DE)
  Receive Date: 20170110
  Receipt Date: 20170110
  Transmission Date: 20170428
  Serious: Yes (Death)
  Sender: FDA-Public Use
  Company Number: DE-LHC-2016207

PATIENT
  Age: 80 Year
  Sex: Female

DRUGS (1)
  1. CONOXIA [Suspect]
     Active Substance: OXYGEN

REACTIONS (1)
  - Accident [Fatal]

NARRATIVE: CASE EVENT DATE: 20161226
